FAERS Safety Report 9950416 (Version 2)
Quarter: 2014Q2

REPORT INFORMATION
  Report Type: Spontaneous
  Country: CA (occurrence: CA)
  Receive Date: 20140304
  Receipt Date: 20140421
  Transmission Date: 20141212
  Serious: Yes (Other)
  Sender: FDA-Public Use
  Company Number: CA-AMGEN-CANSP2014014022

PATIENT
  Age: 75 Year
  Sex: Female

DRUGS (9)
  1. PROLIA [Suspect]
     Indication: OSTEOPOROSIS
     Dosage: UNK
     Route: 065
     Dates: start: 20110117
  2. VITAMIN D                          /00107901/ [Concomitant]
     Dosage: 1000 IU, QD
  3. NEXIUM                             /01479302/ [Concomitant]
     Dosage: 40 MG, QD
  4. OSTEOFIT-C [Concomitant]
  5. SYNTHROID [Concomitant]
     Dosage: 75 MUG, QD
  6. ATACAND [Concomitant]
     Dosage: 8 MG, QD
     Route: 048
     Dates: start: 20080422
  7. ATORVASTATIN [Concomitant]
     Indication: BLOOD CHOLESTEROL
     Dosage: 10 MG, 1/2 TAB DAY
  8. TUMS                               /00193601/ [Concomitant]
     Indication: SUPPLEMENTATION THERAPY
     Dosage: 4 DF, QD
  9. PNEUMOVAX [Concomitant]
     Dosage: 0.5 ML, ONE TIME DOSE
     Dates: start: 20120426, end: 20120426

REACTIONS (3)
  - Osteomalacia [Unknown]
  - Osteonecrosis of jaw [Unknown]
  - Tooth disorder [Unknown]
